FAERS Safety Report 7268454-3 (Version None)
Quarter: 2011Q1

REPORT INFORMATION
  Report Type: 
  Country: None (occurrence: None)
  Receive Date: 20110201
  Receipt Date: 20110120
  Transmission Date: 20110831
  Serious: Yes (Death)
  Sender: FDA-Public Use
  Company Number: JP-ABBOTT-10P-087-0690674-00

PATIENT
  Age: 79 Year
  Sex: Male

DRUGS (4)
  1. CHLORMADINONE ACETATE TAB [Concomitant]
     Indication: PROSTATE CANCER STAGE II
     Route: 048
     Dates: start: 20060531, end: 20071119
  2. PURSENNID [Concomitant]
     Route: 048
     Dates: start: 20070827, end: 20071119
  3. LEUPLIN SR FOR INJECTION 11.25 MG [Suspect]
     Indication: PROSTATE CANCER STAGE II
     Route: 058
     Dates: start: 20061002, end: 20070827
  4. PURSENNID [Concomitant]
     Indication: CONSTIPATION
     Route: 048
     Dates: start: 20060610, end: 20061218

REACTIONS (1)
  - DEATH [None]
